FAERS Safety Report 9096676 (Version 1)
Quarter: 2013Q1

REPORT INFORMATION
  Report Type: Spontaneous
  Country: BR (occurrence: BR)
  Receive Date: 20130211
  Receipt Date: 20130211
  Transmission Date: 20140127
  Serious: Yes (Other)
  Sender: FDA-Public Use
  Company Number: PHHY2013BR011811

PATIENT
  Age: 10 Year
  Sex: Male

DRUGS (2)
  1. RITALINA [Suspect]
     Indication: ATTENTION DEFICIT/HYPERACTIVITY DISORDER
     Dosage: 0.5 DF, QD (HALF TABLET ON AFTERNOON)
     Route: 048
     Dates: start: 2007, end: 2009
  2. RITALINA [Suspect]
     Dosage: 1 DF, BID (1 DF, BID OR 1 DF, TID, TWICE A WEEK)
     Route: 048
     Dates: start: 2009

REACTIONS (6)
  - Neutropenia [Recovering/Resolving]
  - Infection susceptibility increased [Unknown]
  - Retching [Recovered/Resolved]
  - Abdominal pain [Recovered/Resolved]
  - Decreased appetite [Recovered/Resolved]
  - Weight decreased [Recovered/Resolved]
